FAERS Safety Report 9131881 (Version 1)
Quarter: 2013Q1

REPORT INFORMATION
  Report Type: Report from Study
  Country: US (occurrence: US)
  Receive Date: 20130301
  Receipt Date: 20130301
  Transmission Date: 20140127
  Serious: No
  Sender: FDA-Public Use
  Company Number: US-MYLANLABS-2012S1019388

PATIENT
  Age: 16 Year
  Sex: Male
  Weight: 74.84 kg

DRUGS (4)
  1. AMNESTEEM CAPSULES [Suspect]
     Indication: ACNE CYSTIC
     Dates: start: 20120706, end: 20120907
  2. AMNESTEEM CAPSULES [Suspect]
     Indication: ACNE CYSTIC
     Dates: start: 20120908, end: 20120913
  3. AMNESTEEM CAPSULES [Suspect]
     Indication: ACNE CYSTIC
     Dates: start: 20120706, end: 20120907
  4. ZOLOFT [Concomitant]

REACTIONS (3)
  - Fatigue [Not Recovered/Not Resolved]
  - Unevaluable event [Not Recovered/Not Resolved]
  - Frustration [Not Recovered/Not Resolved]
